FAERS Safety Report 8694100 (Version 2)
Quarter: 2012Q4

REPORT INFORMATION
  Report Type: 
  Country: US (occurrence: US)
  Receive Date: 20120731
  Receipt Date: 20121029
  Transmission Date: 20130627
  Serious: Yes (Hospitalization)
  Sender: FDA-Public Use
  Company Number: US-BAYER-2012-073895

PATIENT
  Age: 35 Year
  Sex: Female
  Weight: 86 kg

DRUGS (6)
  1. YAZ [Suspect]
     Dosage: UNK
     Dates: start: 20070910
  2. ALBUTEROL [Concomitant]
  3. LORTAB [Concomitant]
  4. INDOMETHACIN [Concomitant]
     Indication: PLEURITIC PAIN
  5. PREDNISONE [Concomitant]
  6. PROAIR HFA [Concomitant]

REACTIONS (8)
  - Pulmonary embolism [None]
  - Chest pain [None]
  - Injury [None]
  - Dyspnoea [None]
  - General physical health deterioration [None]
  - Emotional distress [None]
  - Pain [None]
  - Anxiety [None]
